FAERS Safety Report 4570404-5 (Version None)
Quarter: 2005Q1

REPORT INFORMATION
  Report Type: 
  Country: None (occurrence: None)
  Receive Date: 20050126
  Receipt Date: 20050126
  Transmission Date: 20050727
  Serious: Yes (Other)
  Sender: FDA-Public Use
  Company Number: None

PATIENT
  Sex: Female
  Weight: 42 kg

DRUGS (1)
  1. KLONOPIN [Suspect]
     Indication: QUADRIPARESIS
     Dosage: 2.75MG AM (1 1/2 TABS) 2.5 MG AM (1 TAB)/SINCE 2000
     Dates: start: 20000101

REACTIONS (1)
  - PHARMACEUTICAL PRODUCT COMPLAINT [None]
